FAERS Safety Report 8824103 (Version 1)
Quarter: 2012Q4

REPORT INFORMATION
  Report Type: 
  Country: FR (occurrence: FR)
  Receive Date: 20121004
  Receipt Date: 20121004
  Transmission Date: 20130627
  Serious: Yes (Other)
  Sender: FDA-Public Use
  Company Number: FR-ACCORD-014825

PATIENT
  Age: 85 Year
  Sex: Female

DRUGS (12)
  1. PACLITAXEL [Suspect]
     Indication: OVARIAN CANCER
     Dosage: 11.4286 mg/m2 (80 mg/m2 once a week), Therapy duration: 14 injection
     Route: 042
     Dates: start: 20120326, end: 20120803
  2. ONDANSETRON [Concomitant]
     Route: 042
  3. ACTISKENAN [Concomitant]
  4. POLARAMINE [Concomitant]
     Dosage: One ampoule
  5. SPECIAFOLDINE [Concomitant]
  6. LOVENOX [Concomitant]
  7. CETIRIZINE [Concomitant]
  8. METHYLPREDNISOLONE [Concomitant]
     Route: 042
  9. FUROSEMIDE [Concomitant]
  10. TRANSIPEG [Concomitant]
  11. RANITIDINE [Concomitant]
     Route: 042
  12. EUPANTOL [Concomitant]

REACTIONS (3)
  - Plantar erythema [Not Recovered/Not Resolved]
  - Skin toxicity [None]
  - Pain [None]
